FAERS Safety Report 14610085 (Version 1)
Quarter: 2018Q1

REPORT INFORMATION
  Report Type: Spontaneous
  Country: US (occurrence: US)
  Receive Date: 20180307
  Receipt Date: 20180307
  Transmission Date: 20180509
  Serious: No
  Sender: FDA-Public Use
  Company Number: US-PFIZER INC-2018091979

PATIENT
  Age: 49 Year
  Sex: Male

DRUGS (2)
  1. VFEND [Suspect]
     Active Substance: VORICONAZOLE
     Indication: LEUKAEMIA
     Dosage: 300 MG, 2X/DAY (ONE 200MG TABLET AND TWO 50MG TABLETS BY MOUTH EVERY 12 HOURS)
     Route: 048
     Dates: start: 201712, end: 201801
  2. VFEND [Suspect]
     Active Substance: VORICONAZOLE
     Indication: BONE MARROW TRANSPLANT
     Dosage: 300 MG, 2X/DAY (ONE 200MG TABLET AND TWO 50MG TABLETS BY MOUTH EVERY 12 HOURS)
     Route: 048
     Dates: start: 201712, end: 201801

REACTIONS (2)
  - Hepatic enzyme increased [Recovering/Resolving]
  - Product use in unapproved indication [Unknown]

NARRATIVE: CASE EVENT DATE: 201712
